FAERS Safety Report 4588766-1 (Version None)
Quarter: 2005Q1

REPORT INFORMATION
  Report Type: 
  Country: None (occurrence: None)
  Receive Date: 20050222
  Receipt Date: 20041018
  Transmission Date: 20050727
  Serious: No
  Sender: FDA-Public Use
  Company Number: US-GLAXOSMITHKLINE-A0530221A

PATIENT
  Age: 60 Year
  Sex: Female

DRUGS (6)
  1. ALKERAN [Suspect]
     Route: 048
     Dates: start: 20040920, end: 20041018
  2. IMURAN [Concomitant]
  3. PROCRIT [Concomitant]
  4. ZOFRAN [Concomitant]
  5. PREDNISONE [Concomitant]
  6. ALBUTEROL [Concomitant]

REACTIONS (1)
  - RASH [None]
